FAERS Safety Report 9216733 (Version 2)
Quarter: 2013Q2

REPORT INFORMATION
  Report Type: Spontaneous
  Country: US (occurrence: US)
  Receive Date: 20130408
  Receipt Date: 20130513
  Transmission Date: 20140414
  Serious: No
  Sender: FDA-Public Use
  Company Number: US-PFIZER INC-2013106231

PATIENT
  Age: 56 Year
  Sex: Female
  Weight: 126 kg

DRUGS (3)
  1. PROTONIX [Suspect]
     Indication: GASTROOESOPHAGEAL REFLUX DISEASE
     Dosage: 40 MG, UNK
     Dates: start: 2010
  2. SINGULAIR [Concomitant]
     Dosage: UNK
  3. LASIX [Concomitant]
     Dosage: UNK

REACTIONS (2)
  - Hypersensitivity [Recovered/Resolved]
  - Hypersensitivity [Unknown]
